FAERS Safety Report 6910407-6 (Version None)
Quarter: 2010Q3

REPORT INFORMATION
  Report Type: 
  Country: None (occurrence: None)
  Receive Date: 20100806
  Receipt Date: 20100726
  Transmission Date: 20110219
  Serious: Yes (Other)
  Sender: FDA-Public Use
  Company Number: KR-PFIZER INC-2010094231

PATIENT
  Sex: Female

DRUGS (2)
  1. LYRICA [Suspect]
     Dosage: UNK
     Route: 048
  2. NEURONTIN [Suspect]
     Dosage: 2 CAPSULES PER DAY
     Route: 048

REACTIONS (3)
  - MUSCULOSKELETAL STIFFNESS [None]
  - OEDEMA PERIPHERAL [None]
  - PARALYSIS [None]
